FAERS Safety Report 5462465-6 (Version None)
Quarter: 2007Q3

REPORT INFORMATION
  Report Type: 
  Country: None (occurrence: None)
  Receive Date: 20070816
  Receipt Date: 20070525
  Transmission Date: 20080115
  Serious: Yes (Other)
  Sender: FDA-Public Use
  Company Number: 37532

PATIENT
  Age: 10 Year
  Sex: Male
  Weight: 40 kg

DRUGS (5)
  1. METHOTREXATE [Suspect]
     Indication: NEOPLASM MALIGNANT
     Dosage: 4.5 MG/M2 (435 MG)
     Dates: start: 20070424, end: 20070425
  2. ASPARAGENASE [Concomitant]
  3. CEFEPIME [Concomitant]
  4. MERCUPTOPURENE [Concomitant]
  5. FAMOTIDINE [Concomitant]

REACTIONS (1)
  - RENAL FAILURE [None]
